FAERS Safety Report 13641647 (Version 1)
Quarter: 2017Q2

REPORT INFORMATION
  Report Type: Spontaneous
  Country: US (occurrence: US)
  Receive Date: 20170611
  Receipt Date: 20170611
  Transmission Date: 20170830
  Serious: Yes (Other)
  Sender: FDA-Public Use
  Company Number: None

PATIENT
  Age: 50 Year
  Sex: Female
  Weight: 54 kg

DRUGS (16)
  1. FLUOXETINE [Suspect]
     Active Substance: FLUOXETINE HYDROCHLORIDE
     Indication: ANXIETY
     Dosage: ?          QUANTITY:1 CAPSULE(S);?
     Route: 048
     Dates: start: 20160726, end: 20170301
  2. PROZAC [Concomitant]
     Active Substance: FLUOXETINE HYDROCHLORIDE
  3. CYCLOBENZAPRINE. [Concomitant]
     Active Substance: CYCLOBENZAPRINE
  4. VITAMIN D [Concomitant]
     Active Substance: CHOLECALCIFEROL
  5. BROMELIAN [Concomitant]
  6. SPIRONOLACTONE. [Concomitant]
     Active Substance: SPIRONOLACTONE
  7. ORTHO TRI-TAB CYCLEN [Concomitant]
  8. FLUOXETINE [Suspect]
     Active Substance: FLUOXETINE HYDROCHLORIDE
     Indication: DEPRESSION
     Dosage: ?          QUANTITY:1 CAPSULE(S);?
     Route: 048
     Dates: start: 20160726, end: 20170301
  9. LORAZEPAM. [Concomitant]
     Active Substance: LORAZEPAM
  10. TUMERIC [Concomitant]
     Active Substance: HERBALS\TURMERIC
  11. HYDROCO/APAP [Concomitant]
     Active Substance: ACETAMINOPHEN\HYDROCODONE
  12. MAGNESIUM [Concomitant]
     Active Substance: MAGNESIUM
  13. ACYCLOVIR. [Concomitant]
     Active Substance: ACYCLOVIR
  14. BUT/APAP/CAF [Concomitant]
  15. VITAMIN C [Concomitant]
     Active Substance: ASCORBIC ACID
  16. OMEGA 3 [Concomitant]
     Active Substance: OMEGA-3 FATTY ACIDS

REACTIONS (11)
  - Anxiety [None]
  - Crying [None]
  - Myalgia [None]
  - Insomnia [None]
  - Loss of personal independence in daily activities [None]
  - Depression [None]
  - Eating disorder [None]
  - Impaired work ability [None]
  - Aggression [None]
  - Tachyphrenia [None]
  - Tension [None]

NARRATIVE: CASE EVENT DATE: 20170301
